FAERS Safety Report 6973850-5 (Version None)
Quarter: 2010Q3

REPORT INFORMATION
  Report Type: 
  Country: None (occurrence: None)
  Receive Date: 20100909
  Receipt Date: 20100903
  Transmission Date: 20110219
  Serious: Yes (Other)
  Sender: FDA-Public Use
  Company Number: B0623508A

PATIENT
  Age: 34 Year
  Sex: Female

DRUGS (2)
  1. AEROLIN [Suspect]
     Indication: ASTHMA
     Route: 055
  2. PULMICORT [Concomitant]

REACTIONS (2)
  - ABORTION INDUCED [None]
  - DRUG EXPOSURE DURING PREGNANCY [None]
